FAERS Safety Report 17846156 (Version 1)
Quarter: 2020Q2

REPORT INFORMATION
  Report Type: Spontaneous
  Country: JP (occurrence: JP)
  Receive Date: 20200601
  Receipt Date: 20200601
  Transmission Date: 20200714
  Serious: Yes (Other)
  Sender: FDA-Public Use
  Company Number: JP-SUNOVION-2020SUN001625

PATIENT
  Age: 26 Year
  Sex: Male

DRUGS (4)
  1. LEXAPRO [Suspect]
     Active Substance: ESCITALOPRAM OXALATE
     Indication: DEPRESSION
     Dosage: 20 MG, QD
     Route: 048
     Dates: start: 20200110
  2. BROTIZOLAM OD [Suspect]
     Active Substance: BROTIZOLAM
     Indication: INSOMNIA
     Dosage: 0.25 MG, QD
     Route: 048
     Dates: start: 20200302
  3. LUNESTA [Suspect]
     Active Substance: ESZOPICLONE
     Indication: INSOMNIA
     Dosage: HS
     Route: 048
     Dates: start: 20200515, end: 20200518
  4. ETIZOLAM [Concomitant]
     Active Substance: ETIZOLAM
     Dosage: WITH MEALS
     Route: 048
     Dates: start: 20200309

REACTIONS (1)
  - Anterograde amnesia [Unknown]

NARRATIVE: CASE EVENT DATE: 20200515
